FAERS Safety Report 5792284-2 (Version None)
Quarter: 2008Q2

REPORT INFORMATION
  Report Type: 
  Country: None (occurrence: None)
  Receive Date: 20080626
  Receipt Date: 20080618
  Transmission Date: 20081010
  Serious: Yes (Hospitalization)
  Sender: FDA-Public Use
  Company Number: US-ELI_LILLY_AND_COMPANY-US200806004692

PATIENT
  Sex: Female

DRUGS (4)
  1. HUMATROPE [Suspect]
     Indication: HYPOTHALAMO-PITUITARY DISORDER
     Dates: start: 20030101
  2. CORTICOSTEROID NOS [Concomitant]
     Dosage: UNK, UNK
     Dates: start: 19800101
  3. THYROID HORMONES [Concomitant]
  4. HYDROCORTISONE [Concomitant]

REACTIONS (3)
  - BLOOD PRESSURE DECREASED [None]
  - CHEST PAIN [None]
  - PLEURAL EFFUSION [None]
